FAERS Safety Report 17835108 (Version 1)
Quarter: 2020Q2

REPORT INFORMATION
  Report Type: Spontaneous
  Country: US (occurrence: US)
  Receive Date: 20200528
  Receipt Date: 20200528
  Transmission Date: 20200714
  Serious: Yes (Death, Life-Threatening, Hospitalization)
  Sender: FDA-Public Use
  Company Number: US-MYLANLABS-2020M1052081

PATIENT
  Age: 65 Year
  Sex: Male

DRUGS (7)
  1. PREZISTA [Suspect]
     Active Substance: DARUNAVIR ETHANOLATE
     Indication: PRODUCT USED FOR UNKNOWN INDICATION
     Dosage: 800 MILLIGRAMINGESTED 30 TABLETS
     Route: 048
  2. PHENYLEPHRINE [Suspect]
     Active Substance: PHENYLEPHRINE HYDROCHLORIDE
     Indication: DRUG THERAPY
     Dosage: UNK
     Route: 065
  3. VASOPRESSIN. [Suspect]
     Active Substance: VASOPRESSIN
     Indication: DRUG THERAPY
     Dosage: UNK
     Route: 065
  4. NOREPINEPHRINE. [Suspect]
     Active Substance: NOREPINEPHRINE
     Indication: DRUG THERAPY
     Dosage: UNK
     Route: 065
  5. TAMSULOSIN [Suspect]
     Active Substance: TAMSULOSIN
     Indication: PRODUCT USED FOR UNKNOWN INDICATION
     Dosage: 0.4 MILLIGRAM INGESTED 30 TABLETS OF TAMSULOSIN 0.4 MG
     Route: 048
  6. GENVOYA [Suspect]
     Active Substance: COBICISTAT\ELVITEGRAVIR\EMTRICITABINE\TENOFOVIR ALAFENAMIDE FUMARATE
     Indication: PRODUCT USED FOR UNKNOWN INDICATION
     Dosage: INGESTED 30 TABLETS
     Route: 048
  7. ANGIOTENSIN II [Suspect]
     Active Substance: ANGIOTENSIN II
     Indication: DRUG THERAPY
     Dosage: UNK
     Route: 065

REACTIONS (8)
  - Intentional overdose [Fatal]
  - Toxicity to various agents [Fatal]
  - Therapy non-responder [Fatal]
  - Completed suicide [Fatal]
  - Blood pressure decreased [Unknown]
  - Mental status changes [Unknown]
  - Bundle branch block right [Fatal]
  - Pulseless electrical activity [Fatal]
